FAERS Safety Report 20594959 (Version 1)
Quarter: 2022Q1

REPORT INFORMATION
  Report Type: Spontaneous
  Country: US (occurrence: US)
  Receive Date: 20220315
  Receipt Date: 20220315
  Transmission Date: 20220424
  Serious: Yes (Hospitalization, Other)
  Sender: FDA-Public Use
  Company Number: US-GLENMARK GENERICS (EUROPE) LTD-2015GMK016942

PATIENT
  Age: 16 Year
  Sex: Female

DRUGS (7)
  1. ROPINIROLE HYDROCHLORIDE [Suspect]
     Active Substance: ROPINIROLE HYDROCHLORIDE
     Indication: Restless legs syndrome
     Dosage: UNK
     Route: 065
  2. GABAPENTIN [Suspect]
     Active Substance: GABAPENTIN
     Indication: Restless legs syndrome
     Dosage: HIGH DOSE
     Route: 065
  3. CYMBALTA [Suspect]
     Active Substance: DULOXETINE HYDROCHLORIDE
     Indication: Restless legs syndrome
     Dosage: UNK
     Route: 065
  4. CLONAZEPAM [Suspect]
     Active Substance: CLONAZEPAM
     Indication: Restless legs syndrome
     Dosage: UNK
     Route: 065
  5. DURAGESIC [Suspect]
     Active Substance: FENTANYL
     Indication: Restless legs syndrome
     Dosage: UNK
     Route: 065
  6. IRON [Suspect]
     Active Substance: IRON
     Indication: Restless legs syndrome
     Dosage: UNK
     Route: 048
  7. IRON [Suspect]
     Active Substance: IRON
     Dosage: UNK
     Route: 042

REACTIONS (4)
  - Chronic kidney disease [Unknown]
  - Serum ferritin increased [Recovering/Resolving]
  - Hypercalcaemia [Unknown]
  - Off label use [Unknown]
